FAERS Safety Report 6887676-4 (Version None)
Quarter: 2010Q3

REPORT INFORMATION
  Report Type: 
  Country: None (occurrence: None)
  Receive Date: 20100730
  Receipt Date: 20100727
  Transmission Date: 20110219
  Serious: Yes (Other)
  Sender: FDA-Public Use
  Company Number: AR-ROCHE-668832

PATIENT
  Sex: Male
  Weight: 72 kg

DRUGS (10)
  1. PEGINTERFERON ALFA-2A [Suspect]
     Indication: HEPATITIS C
     Dosage: STRENGTH AND TDD REPORTED 180 UG/ML. FORM: SOLUTION FOR INJECTION.
     Route: 058
     Dates: start: 20090427, end: 20090817
  2. RIBAVIRIN [Suspect]
     Indication: HEPATITIS C
     Route: 048
     Dates: start: 20090427, end: 20090824
  3. BLINDED BI 201335 NA [Suspect]
     Indication: HEPATITIS C
     Route: 048
     Dates: start: 20090427, end: 20090831
  4. AMOXICILLIN AND CLAVULANATE POTASSIUM [Concomitant]
     Indication: PNEUMONIA
     Route: 048
     Dates: start: 20090825, end: 20090909
  5. CIPROFLOXACIN HCL [Concomitant]
     Indication: PNEUMONIA
     Route: 048
     Dates: start: 20090825, end: 20090909
  6. LANSOPRAZOLE [Concomitant]
     Indication: PROPHYLAXIS
     Route: 048
     Dates: start: 20090827, end: 20090909
  7. MEPREDNISONE [Concomitant]
     Indication: BRONCHOSPASM
     Route: 048
     Dates: start: 20090825, end: 20090830
  8. DICLOFENAC [Concomitant]
     Dates: end: 20090825
  9. BETAMETHASONE [Concomitant]
  10. LORATADINE [Concomitant]

REACTIONS (11)
  - BLISTER [None]
  - BRONCHOSPASM [None]
  - CATARACT [None]
  - DRUG ADMINISTRATION ERROR [None]
  - DRUG DOSE OMISSION [None]
  - PNEUMONIA [None]
  - PRURITUS [None]
  - RASH ERYTHEMATOUS [None]
  - RASH MACULAR [None]
  - SKIN EXFOLIATION [None]
  - TREATMENT NONCOMPLIANCE [None]
